FAERS Safety Report 14258757 (Version 2)
Quarter: 2017Q4

REPORT INFORMATION
  Report Type: Spontaneous
  Country: CA (occurrence: CA)
  Receive Date: 20171207
  Receipt Date: 20171219
  Transmission Date: 20180321
  Serious: Yes (Other)
  Sender: FDA-Public Use
  Company Number: CA-ROCHE-2032231

PATIENT
  Sex: Female

DRUGS (11)
  1. HUMIRA [Concomitant]
     Active Substance: ADALIMUMAB
     Indication: RHEUMATOID ARTHRITIS
     Dosage: FOR 7 YEARS
     Route: 065
  2. ARAVA [Suspect]
     Active Substance: LEFLUNOMIDE
     Indication: PRODUCT USED FOR UNKNOWN INDICATION
     Route: 065
  3. METHOTREXATE. [Suspect]
     Active Substance: METHOTREXATE
     Indication: RHEUMATOID ARTHRITIS
     Route: 065
  4. DICLOFENAC [Concomitant]
     Active Substance: DICLOFENAC
  5. DEPO-MEDROL [Concomitant]
     Active Substance: METHYLPREDNISOLONE ACETATE
     Indication: RHEUMATOID ARTHRITIS
     Route: 065
     Dates: start: 20170920, end: 20170920
  6. ACTEMRA [Suspect]
     Active Substance: TOCILIZUMAB
     Indication: RHEUMATOID ARTHRITIS
     Route: 058
     Dates: start: 2016, end: 201711
  7. MELOXICAM. [Suspect]
     Active Substance: MELOXICAM
     Indication: PRODUCT USED FOR UNKNOWN INDICATION
     Route: 065
  8. LEFLUNOMIDE. [Suspect]
     Active Substance: LEFLUNOMIDE
     Indication: RHEUMATOID ARTHRITIS
     Route: 065
     Dates: start: 201706, end: 201709
  9. HYDROXYCHLOROQUINE [Concomitant]
     Active Substance: HYDROXYCHLOROQUINE
     Indication: RHEUMATOID ARTHRITIS
     Route: 065
  10. ORENCIA [Suspect]
     Active Substance: ABATACEPT
     Indication: RHEUMATOID ARTHRITIS
     Dosage: FOR 7 YEARS
     Route: 065
  11. PLAQUENIL [Suspect]
     Active Substance: HYDROXYCHLOROQUINE SULFATE
     Indication: PRODUCT USED FOR UNKNOWN INDICATION
     Route: 065

REACTIONS (33)
  - Bone density decreased [Unknown]
  - Feeling abnormal [Unknown]
  - Rheumatoid nodule [Unknown]
  - Musculoskeletal pain [Unknown]
  - Rash maculo-papular [Unknown]
  - Fibromyalgia [Unknown]
  - Muscular weakness [Unknown]
  - Deformity [Unknown]
  - Rheumatoid arthritis [Unknown]
  - Upper respiratory tract infection [Unknown]
  - Musculoskeletal stiffness [Unknown]
  - Drug intolerance [Unknown]
  - Crepitations [Unknown]
  - Pulmonary toxicity [Unknown]
  - Drug ineffective [Unknown]
  - C-reactive protein increased [Unknown]
  - Fatigue [Unknown]
  - Tenosynovitis [Unknown]
  - Malaise [Unknown]
  - Hand deformity [Unknown]
  - Joint swelling [Unknown]
  - Arthralgia [Unknown]
  - Synovial cyst [Unknown]
  - Allergy to chemicals [Unknown]
  - Dizziness [Unknown]
  - Rash pruritic [Unknown]
  - Peripheral swelling [Unknown]
  - Pain in extremity [Unknown]
  - Dry eye [Unknown]
  - Liver disorder [Unknown]
  - Myalgia [Unknown]
  - Diarrhoea [Unknown]
  - Joint range of motion decreased [Unknown]
